FAERS Safety Report 9094981 (Version 2)
Quarter: 2013Q3

REPORT INFORMATION
  Report Type: Spontaneous
  Country: US (occurrence: US)
  Receive Date: 20130220
  Receipt Date: 20130704
  Transmission Date: 20140515
  Serious: No
  Sender: FDA-Public Use
  Company Number: US-BIOGENIDEC-2012BI065155

PATIENT
  Sex: Female

DRUGS (1)
  1. AVONEX [Suspect]
     Indication: MULTIPLE SCLEROSIS
     Route: 030
     Dates: start: 20080801, end: 20121112

REACTIONS (9)
  - Stress [Unknown]
  - Influenza [Recovered/Resolved]
  - Adverse event [Recovered/Resolved]
  - Decreased immune responsiveness [Recovered/Resolved]
  - General physical health deterioration [Recovered/Resolved]
  - Influenza like illness [Unknown]
  - Suicidal ideation [Unknown]
  - Depression [Unknown]
  - Feeling abnormal [Not Recovered/Not Resolved]
